FAERS Safety Report 19462599 (Version 1)
Quarter: 2021Q2

REPORT INFORMATION
  Report Type: Report from Study
  Country: US (occurrence: US)
  Receive Date: 20210625
  Receipt Date: 20210625
  Transmission Date: 20210717
  Serious: Yes (Death, Hospitalization)
  Sender: FDA-Public Use
  Company Number: US-ALLERGAN-2123096US

PATIENT
  Sex: Male

DRUGS (2)
  1. UBROGEPANT 100MG TAB (13760X) [Suspect]
     Active Substance: UBROGEPANT
     Indication: MIGRAINE
     Dosage: 100 MG, PRN
     Route: 048
  2. UBROGEPANT 100MG TAB (13760X) [Suspect]
     Active Substance: UBROGEPANT
     Dosage: UNK
     Route: 048

REACTIONS (8)
  - Haemorrhage intracranial [Fatal]
  - Aneurysm [Unknown]
  - Migraine [Unknown]
  - Death [Fatal]
  - Cerebral haemorrhage [Unknown]
  - Unresponsive to stimuli [Unknown]
  - Life support [Unknown]
  - Drug ineffective [Unknown]

NARRATIVE: CASE EVENT DATE: 20210212
